FAERS Safety Report 17257474 (Version 1)
Quarter: 2020Q1

REPORT INFORMATION
  Report Type: Spontaneous
  Country: GB (occurrence: GB)
  Receive Date: 20200110
  Receipt Date: 20200110
  Transmission Date: 20200409
  Serious: Yes (Life-Threatening, Other)
  Sender: FDA-Public Use
  Company Number: NVSC2020GB004668

PATIENT
  Age: 51 Year
  Sex: Male
  Weight: 79.37 kg

DRUGS (1)
  1. CO-AMOXICLAV 1000 MG/200 MG POWDER FOR SOLUTION FOR INJECTION/INFUSION [Suspect]
     Active Substance: AMOXICILLIN\CLAVULANATE POTASSIUM
     Indication: SEPSIS
     Dosage: 1.2 G
     Route: 042
     Dates: start: 20191012, end: 20191012

REACTIONS (1)
  - Anaphylactic reaction [Recovered/Resolved]

NARRATIVE: CASE EVENT DATE: 20191012
